FAERS Safety Report 7768557-0 (Version None)
Quarter: 2011Q3

REPORT INFORMATION
  Report Type: 
  Country: None (occurrence: None)
  Receive Date: 20110922
  Receipt Date: 20100908
  Transmission Date: 20111222
  Serious: No
  Sender: FDA-Public Use
  Company Number: US-ASTRAZENECA-2010SE34351

PATIENT
  Age: 22965 Day
  Sex: Female
  Weight: 102.1 kg

DRUGS (9)
  1. SEROQUEL [Suspect]
     Indication: SLEEP DISORDER
     Route: 048
     Dates: start: 20070101
  2. DIAZEPAM [Concomitant]
  3. SEROQUEL [Suspect]
     Dosage: 50-400 MG AT BADTIME AS NEEDED
     Route: 048
     Dates: start: 20070101
  4. TEMAZEPAM [Concomitant]
  5. CORTISONE SHOTS [Suspect]
     Route: 065
  6. SEROQUEL [Suspect]
     Route: 048
  7. HYDROCODONE BITARTRATE AND ACETAMINOPHEN [Concomitant]
  8. SOMA [Concomitant]
  9. LIDOCAINE [Concomitant]

REACTIONS (12)
  - ABDOMINAL PAIN UPPER [None]
  - AMNESIA [None]
  - DYSPNOEA [None]
  - DEPRESSION [None]
  - DIABETES MELLITUS [None]
  - MUSCLE SPASMS [None]
  - DRUG DEPENDENCE [None]
  - INSOMNIA [None]
  - INCORRECT DOSE ADMINISTERED [None]
  - DECREASED ACTIVITY [None]
  - BOREDOM [None]
  - WEIGHT INCREASED [None]
